FAERS Safety Report 12225965 (Version 1)
Quarter: 2016Q1

REPORT INFORMATION
  Report Type: Report from Study
  Country: DE (occurrence: CL)
  Receive Date: 20160331
  Receipt Date: 20160331
  Transmission Date: 20160526
  Serious: Yes (Hospitalization, Other)
  Sender: FDA-Public Use
  Company Number: DE-ACTELION-A-NJ2016-133707

PATIENT
  Age: 53 Year
  Sex: Male

DRUGS (7)
  1. TRACLEER [Concomitant]
     Active Substance: BOSENTAN
     Indication: PULMONARY HYPERTENSION
     Route: 048
  2. FUROSEMIDE. [Concomitant]
     Active Substance: FUROSEMIDE
  3. VENTAVIS [Suspect]
     Active Substance: ILOPROST
     Indication: PULMONARY HYPERTENSION
     Dosage: 1 DF, 8ID
     Route: 055
     Dates: start: 20141125
  4. SILDENAFIL. [Concomitant]
     Active Substance: SILDENAFIL
  5. SPIRONOLACTONE. [Concomitant]
     Active Substance: SPIRONOLACTONE
  6. ASPIRINA [Concomitant]
     Active Substance: ASPIRIN
  7. SERTRALINE [Concomitant]
     Active Substance: SERTRALINE HYDROCHLORIDE

REACTIONS (7)
  - Fluid retention [Recovering/Resolving]
  - Anaemia [Recovering/Resolving]
  - Pulmonary hypertension [Recovering/Resolving]
  - Epistaxis [Recovering/Resolving]
  - Swelling [Recovering/Resolving]
  - Oedema [Recovering/Resolving]
  - Dyspnoea [Recovering/Resolving]

NARRATIVE: CASE EVENT DATE: 201601
